FAERS Safety Report 7059713-8 (Version None)
Quarter: 2010Q4

REPORT INFORMATION
  Report Type: 
  Country: None (occurrence: None)
  Receive Date: 20101025
  Receipt Date: 20101013
  Transmission Date: 20110411
  Serious: Yes (Other)
  Sender: FDA-Public Use
  Company Number: DZ-BRISTOL-MYERS SQUIBB COMPANY-15335888

PATIENT
  Age: 62 Year
  Sex: Female
  Weight: 62 kg

DRUGS (6)
  1. METFORMIN HCL [Suspect]
     Indication: TYPE 2 DIABETES MELLITUS
     Route: 048
     Dates: start: 20100510
  2. INSULIN DETEMIR [Suspect]
     Indication: TYPE 2 DIABETES MELLITUS
     Dosage: INSULIN DETEMIR FLEXPEN SOLUNTION FOR INJECTION
     Route: 058
     Dates: start: 20100530
  3. ASPEGIC 1000 [Concomitant]
     Dates: start: 20080101
  4. ERCEFURYL [Concomitant]
     Dates: start: 20080101
  5. CIPROFLOXACIN [Concomitant]
  6. DIFLUCAN [Concomitant]
     Dates: start: 20100718, end: 20100803

REACTIONS (1)
  - WEIGHT DECREASED [None]
